FAERS Safety Report 18788566 (Version 1)
Quarter: 2021Q1

REPORT INFORMATION
  Report Type: Report from Study
  Country: US (occurrence: US)
  Receive Date: 20210126
  Receipt Date: 20210126
  Transmission Date: 20210419
  Serious: Yes (Other)
  Sender: FDA-Public Use
  Company Number: US-GLAXOSMITHKLINE-US2021AMR015212

PATIENT
  Sex: Female

DRUGS (1)
  1. NIRAPARIB [Suspect]
     Active Substance: NIRAPARIB
     Indication: FALLOPIAN TUBE CANCER
     Dosage: 100 MG, QD
     Dates: start: 202004

REACTIONS (7)
  - Thrombosis [Unknown]
  - Asthenopia [Unknown]
  - Vision blurred [Unknown]
  - Off label use [Unknown]
  - Blood pressure increased [Unknown]
  - Rectal haemorrhage [Unknown]
  - Arthralgia [Unknown]
